FAERS Safety Report 8197839-6 (Version None)
Quarter: 2012Q1

REPORT INFORMATION
  Report Type: 
  Country: None (occurrence: None)
  Receive Date: 20120309
  Receipt Date: 20120227
  Transmission Date: 20120608
  Serious: Yes (Other)
  Sender: FDA-Public Use
  Company Number: TW-CELGENEUS-153-21880-12022911

PATIENT
  Sex: Male
  Weight: 56.3 kg

DRUGS (79)
  1. DEFENSE [Concomitant]
     Dosage: 2.25 MILLIGRAM
     Route: 041
  2. LASIX [Concomitant]
     Dosage: 20MG/ML
     Route: 041
     Dates: start: 20120131, end: 20120201
  3. BISOPROLOL FUMARATE [Concomitant]
     Route: 048
     Dates: start: 20120227
  4. S-60 [Concomitant]
     Dosage: 1000 MILLIGRAM
     Route: 041
     Dates: start: 20120210, end: 20120211
  5. DEMEROL [Concomitant]
     Dosage: 50 MILLIGRAM
     Route: 041
     Dates: start: 20120221, end: 20120222
  6. NICARDIPINE HCL [Concomitant]
     Dosage: 10 MILLIGRAM
     Route: 041
     Dates: start: 20120211, end: 20120212
  7. REVLIMID [Suspect]
     Indication: MULTIPLE MYELOMA
     Dosage: 15 MILLIGRAM
     Route: 048
     Dates: start: 20110614, end: 20111010
  8. ALLERMIN [Concomitant]
     Dosage: 5MG/ML
     Route: 041
     Dates: start: 20120211, end: 20120212
  9. ALLERMIN [Concomitant]
     Dosage: 5MG/ML
     Route: 041
     Dates: start: 20120227, end: 20120228
  10. NEOMYCIN [Concomitant]
     Route: 065
     Dates: start: 20120224
  11. CALAMINE [Concomitant]
     Dosage: 100 MILLILITER
     Route: 061
     Dates: start: 20120214, end: 20120229
  12. MYDOCALM [Concomitant]
     Dosage: 150 MILLIGRAM
     Route: 048
     Dates: start: 20120128, end: 20120129
  13. GENESAFE [Concomitant]
     Dosage: 600 MILLIGRAM
     Route: 048
  14. SANDIMMUNE [Concomitant]
     Dosage: 50 MILLILITER
     Route: 048
  15. HEPARIN SODIUM [Concomitant]
     Dosage: 500U/5ML
     Route: 041
  16. TRAMADOL HYDROCHLORIDE [Concomitant]
     Dosage: 1
     Route: 041
     Dates: start: 20120203, end: 20120204
  17. TRAMADOL HYDROCHLORIDE [Concomitant]
     Dosage: .5
     Route: 041
     Dates: start: 20120211, end: 20120212
  18. TRAMADOL HYDROCHLORIDE [Concomitant]
     Dosage: 1
     Route: 041
     Dates: start: 20120222
  19. ALLERMIN [Concomitant]
     Dosage: 5MG/ML
     Route: 041
     Dates: start: 20120203, end: 20120204
  20. SODIUM CHLORIDE [Concomitant]
     Dosage: 250 MILLILITER
     Route: 041
     Dates: start: 20120211, end: 20120212
  21. SODIUM CHLORIDE [Concomitant]
     Dosage: 500 MILLILITER
     Route: 041
     Dates: start: 20120221
  22. PIPERACILLIN AND TAZOBACTAM [Concomitant]
     Dosage: 2.25 MILLIGRAM
     Route: 041
     Dates: start: 20120120, end: 20120121
  23. ULTRACET [Concomitant]
     Dosage: 2.25 MILLIGRAM
     Route: 041
  24. LASIX [Concomitant]
     Dosage: 20MG/2ML
     Route: 041
     Dates: start: 20120207, end: 20120208
  25. KLEAN PREP [Concomitant]
     Dosage: X2
     Route: 065
     Dates: start: 20120201, end: 20120202
  26. ACETYLCYSTEINE A [Concomitant]
     Dosage: 2
     Route: 048
     Dates: start: 20120209, end: 20120210
  27. PRIMPERAN TAB [Concomitant]
     Dosage: 10 MILLIGRAM
     Route: 041
     Dates: start: 20120121, end: 20120125
  28. METRONIDAZOLE [Concomitant]
     Dosage: 500 MILLIGRAM
     Route: 041
     Dates: start: 20120210, end: 20120211
  29. HEPARIN SODIUM [Concomitant]
     Dosage: 500U/5ML
     Route: 041
  30. TRAMADOL HYDROCHLORIDE [Concomitant]
     Dosage: 50 MILLIGRAM
     Route: 048
     Dates: start: 20120120, end: 20120120
  31. ALLERMIN [Concomitant]
     Dosage: 5MG/ML
     Route: 041
     Dates: start: 20120121, end: 20120122
  32. SODIUM CHLORIDE [Concomitant]
     Dosage: 500 MILLILITER
     Route: 041
     Dates: start: 20120121, end: 20120122
  33. SODIUM CHLORIDE [Concomitant]
     Dosage: 250 MILLILITER
     Route: 041
     Dates: start: 20120203, end: 20120204
  34. SODIUM CHLORIDE [Concomitant]
     Dosage: 500 MILLILITER
     Route: 041
     Dates: start: 20120117, end: 20120117
  35. MYDOCALM [Concomitant]
     Dosage: 2.25 MILLIGRAM
     Route: 041
  36. CALGLON [Concomitant]
     Dosage: 2.25 MILLIGRAM
     Route: 041
  37. LASIX [Concomitant]
     Dosage: 20MG/2ML
     Route: 041
     Dates: start: 20120221, end: 20120222
  38. EVAC ENEMA [Concomitant]
     Dosage: 118ML
     Route: 054
     Dates: start: 20120203, end: 20120204
  39. BISOPROLOL FUMARATE [Concomitant]
     Dosage: .5 TABLET
     Route: 048
  40. MGO [Concomitant]
     Dosage: 250 MILLIGRAM
     Route: 048
     Dates: start: 20120120, end: 20120123
  41. SODIUM CHLORIDE [Concomitant]
     Dosage: 500 MILLILITER
     Route: 041
     Dates: start: 20120131, end: 20120201
  42. SODIUM CHLORIDE [Concomitant]
     Dosage: 500 MILLILITER
     Route: 041
     Dates: start: 20120211, end: 20120212
  43. SODIUM CHLORIDE [Concomitant]
     Dosage: 500 MILLILITER
     Route: 041
     Dates: start: 20120223
  44. SODIUM CHLORIDE [Concomitant]
     Dosage: 500 MILLILITER
     Route: 041
     Dates: start: 20120224
  45. NORVASC [Concomitant]
     Dosage: 10 MILLIGRAM
     Route: 048
     Dates: start: 20120215, end: 20120229
  46. PIPERACILLIN AND TAZOBACTAM [Concomitant]
     Dosage: 2.25 MILLIGRAM
     Route: 041
     Dates: start: 20120120, end: 20120203
  47. DEXTROSE 5% [Concomitant]
     Dosage: 500 MILLILITER
     Route: 041
     Dates: start: 20120208, end: 20120209
  48. PRIMPERAN TAB [Concomitant]
     Dosage: 15 MILLIGRAM
     Route: 048
  49. DEMEROL [Concomitant]
     Dosage: 50 MILLIGRAM
     Route: 041
     Dates: start: 20120211, end: 20120212
  50. MORPHINE [Concomitant]
     Dosage: 3 MILLIGRAM
     Route: 041
     Dates: start: 20120211, end: 20120212
  51. LACTATED RINGER'S [Concomitant]
     Route: 041
     Dates: start: 20120211, end: 20120212
  52. ATIVAN [Concomitant]
     Dosage: .5 MILLIGRAM
     Route: 048
     Dates: start: 20120220, end: 20120221
  53. BACIDE [Concomitant]
     Dosage: 800 MILLIGRAM
     Route: 048
  54. MIZOLLEN [Concomitant]
     Dosage: 10 MILLIGRAM
     Route: 048
  55. CEFMETAZOLE [Concomitant]
     Dosage: 2000 MILLIGRAM
     Route: 041
     Dates: start: 20120227
  56. TAITA NO. 3 [Concomitant]
     Dosage: 500
     Route: 041
     Dates: start: 20120211, end: 20120212
  57. DEMEROL [Concomitant]
     Dosage: 50 MILLIGRAM
     Route: 041
     Dates: start: 20120211, end: 20120212
  58. TRANDATE [Concomitant]
     Dosage: 5MG/0.5
     Route: 041
     Dates: start: 20120213, end: 20120214
  59. TRAMADOL HYDROCHLORIDE [Concomitant]
     Dosage: 100 MILLIGRAM
     Route: 048
  60. TRAMADOL HYDROCHLORIDE [Concomitant]
     Dosage: 1
     Route: 048
     Dates: start: 20120225
  61. ALLERMIN [Concomitant]
     Dosage: 5MG/ML
     Route: 041
     Dates: start: 20120131, end: 20120201
  62. ALLERMIN [Concomitant]
     Dosage: 5MG/ML
     Route: 041
     Dates: start: 20120206, end: 20120207
  63. ALLERMIN [Concomitant]
     Dosage: 5MG/ML
     Route: 041
     Dates: start: 20120221, end: 20120222
  64. SODIUM CHLORIDE [Concomitant]
     Dosage: 250
     Route: 041
     Dates: start: 20120220, end: 20120221
  65. ECONAZOLE NITRATE [Concomitant]
     Route: 061
     Dates: start: 20120225
  66. DEFENSE [Concomitant]
     Dosage: 300
     Route: 048
     Dates: start: 20120122, end: 20120123
  67. ULTRACET [Concomitant]
     Dosage: 1 TABLET
     Route: 048
     Dates: start: 20120128, end: 20120129
  68. CALGLON [Concomitant]
     Dosage: 10 MILLILITER
     Route: 041
     Dates: start: 20120131, end: 20120201
  69. SOD BICARBONATE [Concomitant]
     Dosage: 4.5
     Route: 041
     Dates: start: 20120208, end: 20120209
  70. RINDERON-V [Concomitant]
     Route: 061
     Dates: start: 20120227
  71. TRANDATE [Concomitant]
     Dosage: 5MG/0.5
     Route: 041
     Dates: start: 20120214, end: 20120215
  72. ALLERMIN [Concomitant]
     Dosage: 5MG/ML
     Route: 041
     Dates: start: 20120210, end: 20120211
  73. ALLERMIN [Concomitant]
     Dosage: 5MG/ML
     Route: 041
  74. SODIUM CHLORIDE [Concomitant]
     Dosage: 250 MILLILITER
     Route: 041
     Dates: start: 20120206, end: 20120207
  75. SODIUM CHLORIDE [Concomitant]
     Dosage: 250 MILLILITER
     Route: 041
     Dates: start: 20120210, end: 20120211
  76. DEXTROSE 5% [Concomitant]
     Dosage: 500 MILLILITER
     Route: 041
     Dates: start: 20120210, end: 20120211
  77. ALLEGRA [Concomitant]
     Dosage: 120 MILLIGRAM
     Route: 048
     Dates: start: 20120227
  78. RINGER'S SOLUTION [Concomitant]
     Dosage: 500
     Route: 041
     Dates: start: 20120211, end: 20120212
  79. STROCAIN [Concomitant]
     Route: 048

REACTIONS (1)
  - COLON CANCER STAGE III [None]
